FAERS Safety Report 9239452 (Version 2)
Quarter: 2013Q2

REPORT INFORMATION
  Report Type: Spontaneous
  Country: US (occurrence: US)
  Receive Date: 20130418
  Receipt Date: 20130529
  Transmission Date: 20140414
  Serious: No
  Sender: FDA-Public Use
  Company Number: US-PFIZER INC-2013117873

PATIENT
  Age: 8 Year
  Sex: Male
  Weight: 45.35 kg

DRUGS (4)
  1. ZITHROMAX [Suspect]
     Dosage: TWO TEASPOONFULS AT AN UNKNOWN DOSE AND FREQUENCY
     Dates: start: 201304, end: 201304
  2. QUILLIVANT XR [Suspect]
     Indication: ATTENTION DEFICIT/HYPERACTIVITY DISORDER
     Dosage: 20 MG, 1X/DAY
     Dates: start: 20130409
  3. PROAIR [Suspect]
     Indication: ALLERGIC SINUSITIS
     Dosage: UNK
     Dates: start: 20130411
  4. LORTAB [Concomitant]
     Indication: ALLERGIC SINUSITIS
     Dosage: UNK, AS NEEDED

REACTIONS (7)
  - Headache [Unknown]
  - Agitation [Unknown]
  - Nervousness [Unknown]
  - Coordination abnormal [Unknown]
  - Cough [Unknown]
  - Vomiting [Unknown]
  - Nausea [Recovered/Resolved]
